FAERS Safety Report 15647678 (Version 1)
Quarter: 2018Q4

REPORT INFORMATION
  Report Type: Spontaneous
  Country: ES (occurrence: ES)
  Receive Date: 20181122
  Receipt Date: 20181122
  Transmission Date: 20190205
  Serious: Yes (Hospitalization, Other)
  Sender: FDA-Public Use
  Company Number: ES-SUN PHARMACEUTICAL INDUSTRIES LTD-2018RR-191808

PATIENT
  Age: 92 Year
  Sex: Male

DRUGS (7)
  1. GABAPENTIN. [Suspect]
     Active Substance: GABAPENTIN
     Indication: NEUROPATHY PERIPHERAL
     Dosage: DIFERENTES POSOLOGIAS
     Route: 048
     Dates: start: 2008
  2. TARDYFERON 80 MG COMPRIMIDOS RECUBIERTOS [Concomitant]
     Indication: PRODUCT USED FOR UNKNOWN INDICATION
     Dosage: 1-0-0
     Route: 048
  3. CLEXANE 40 MG [Concomitant]
     Indication: PRODUCT USED FOR UNKNOWN INDICATION
     Dosage: 1/24
     Route: 058
  4. BENEXOL [Concomitant]
     Active Substance: CYANOCOBALAMIN\PYRIDOXINE\THIAMINE
     Indication: PRODUCT USED FOR UNKNOWN INDICATION
     Dosage: ^COMPLEJO B + C ALTERNANDO CADA 2 MESES (ESTE MES NO)^. EN HISTORIA CLINICA ELECTRONICA DE ATENCI...
     Route: 048
  5. PROPRANOLOL 10 MG 50 COMPRIMIDOS [Concomitant]
     Indication: TREMOR
     Dosage: 1-0-1
     Route: 048
  6. BECOZYME C FORTE [Concomitant]
     Indication: PRODUCT USED FOR UNKNOWN INDICATION
     Dosage: ^COMPLEJO B + C ALTERNANDO CADA 2 MESES (ESTE MES NO)^.EN HISTORIA CLINICA ELECTRONICA DE ATENCIO...
     Route: 048
  7. OP2292 - VITAMINA D DERIVADOS [Concomitant]
     Indication: PRODUCT USED FOR UNKNOWN INDICATION
     Route: 065

REACTIONS (1)
  - Hyponatraemia [Recovering/Resolving]

NARRATIVE: CASE EVENT DATE: 2018
